FAERS Safety Report 8213269-2 (Version None)
Quarter: 2012Q1

REPORT INFORMATION
  Report Type: 
  Country: None (occurrence: None)
  Receive Date: 20120315
  Receipt Date: 20120302
  Transmission Date: 20120608
  Serious: Yes (Death, Hospitalization, Other)
  Sender: FDA-Public Use
  Company Number: PH-CELGENEUS-128-21880-11103491

PATIENT
  Sex: Female
  Weight: 67 kg

DRUGS (1)
  1. REVLIMID [Suspect]
     Dosage: 15 MILLIGRAM
     Route: 048
     Dates: start: 20111014, end: 20111020

REACTIONS (4)
  - MULTI-ORGAN FAILURE [None]
  - CEREBRAL HAEMORRHAGE [None]
  - PNEUMONIA [None]
  - ACUTE MYELOID LEUKAEMIA RECURRENT [None]
